FAERS Safety Report 23486791 (Version 1)
Quarter: 2024Q1

REPORT INFORMATION
  Report Type: Spontaneous
  Country: FR (occurrence: FR)
  Receive Date: 20240206
  Receipt Date: 20240206
  Transmission Date: 20240410
  Serious: Yes (Life-Threatening, Hospitalization)
  Sender: FDA-Public Use
  Company Number: None

PATIENT
  Age: 25 Year
  Sex: Male
  Weight: 175 kg

DRUGS (6)
  1. CARBOPLATIN [Suspect]
     Active Substance: CARBOPLATIN
     Indication: Testicular germ cell tumour
     Dosage: 500 MG, CYCLIC C2D5
     Route: 042
     Dates: start: 20231022, end: 20231209
  2. ETOPOSIDE [Suspect]
     Active Substance: ETOPOSIDE
     Indication: Testicular germ cell tumour
     Dosage: 300 MG, CYCLIC C2D5
     Route: 042
     Dates: start: 20231022, end: 20231209
  3. MESNA [Suspect]
     Active Substance: MESNA
     Indication: Testicular germ cell tumour
     Dosage: 5760 MG, CYCLIC C2D5
     Route: 042
     Dates: start: 20231022, end: 20231209
  4. IFOSFAMIDE [Suspect]
     Active Substance: IFOSFAMIDE
     Indication: Testicular germ cell tumour
     Dosage: 4784.3 MG, CYCLIC C2D5
     Route: 042
     Dates: start: 20231022, end: 20231209
  5. VALACYCLOVIR HYDROCHLORIDE [Concomitant]
     Active Substance: VALACYCLOVIR HYDROCHLORIDE
     Indication: Antiviral prophylaxis
     Dosage: 1 G, 1X/DAY
     Route: 048
     Dates: end: 20231222
  6. PREDNISOLONE [Concomitant]
     Active Substance: PREDNISOLONE
     Indication: Testicular germ cell tumour
     Dosage: 10 MG, 1X/DAY
     Route: 048
     Dates: end: 20240106

REACTIONS (3)
  - Hypokalaemia [Recovering/Resolving]
  - Renal tubular disorder [Recovering/Resolving]
  - Off label use [Unknown]

NARRATIVE: CASE EVENT DATE: 20231022
